FAERS Safety Report 12496193 (Version 3)
Quarter: 2016Q3

REPORT INFORMATION
  Report Type: Spontaneous
  Country: US (occurrence: US)
  Receive Date: 20160624
  Receipt Date: 20160728
  Transmission Date: 20161109
  Serious: No
  Sender: FDA-Public Use
  Company Number: US-009507513-1606USA009268

PATIENT

DRUGS (8)
  1. RECOMBIVAX HB [Suspect]
     Active Substance: HEPATITIS B VIRUS SUBTYPE ADW HBSAG SURFACE PROTEIN ANTIGEN
     Indication: PROPHYLAXIS
     Dates: start: 2016, end: 2016
  2. STERILE DILUENT [Suspect]
     Active Substance: WATER
     Dosage: UNK
     Dates: start: 2016, end: 2016
  3. STERILE DILUENT [Suspect]
     Active Substance: WATER
     Dosage: UNK
     Dates: start: 2016, end: 2016
  4. STERILE DILUENT [Suspect]
     Active Substance: WATER
     Dosage: UNK
     Dates: start: 2016, end: 2016
  5. RECOMBIVAX HB [Suspect]
     Active Substance: HEPATITIS B VIRUS SUBTYPE ADW HBSAG SURFACE PROTEIN ANTIGEN
     Dates: start: 2016, end: 2016
  6. RECOMBIVAX HB [Suspect]
     Active Substance: HEPATITIS B VIRUS SUBTYPE ADW HBSAG SURFACE PROTEIN ANTIGEN
     Dates: start: 2016, end: 2016
  7. RECOMBIVAX HB [Suspect]
     Active Substance: HEPATITIS B VIRUS SUBTYPE ADW HBSAG SURFACE PROTEIN ANTIGEN
     Dates: start: 2016, end: 2016
  8. STERILE DILUENT [Suspect]
     Active Substance: WATER
     Dosage: UNK
     Dates: start: 2016, end: 2016

REACTIONS (2)
  - Incorrect product storage [Unknown]
  - No adverse event [Unknown]

NARRATIVE: CASE EVENT DATE: 2016
